FAERS Safety Report 5206205-4 (Version None)
Quarter: 2006Q4

REPORT INFORMATION
  Report Type: 
  Country: None (occurrence: None)
  Receive Date: 20061026
  Receipt Date: 20060630
  Transmission Date: 20070319
  Serious: No
  Sender: FDA-Public Use
  Company Number: 2006042174

PATIENT
  Age: 73 Year
  Sex: Female
  Weight: 64.8644 kg

DRUGS (12)
  1. LYRICA [Suspect]
     Indication: HERPES ZOSTER
     Dosage: 150 MG (75 MG, 2 IN 1 D)
     Dates: start: 20060201, end: 20060401
  2. IBUPROFEN [Concomitant]
  3. SYNTHROID [Concomitant]
  4. METOPROLOL TARTRATE [Concomitant]
  5. FOLTX (CYANOCOBALAMIN, FOLIC ACID, PYRIDOXINE) [Concomitant]
  6. CLORAZEPATE (CLOAZEPATE DIPOTASSIUM) [Concomitant]
  7. CRESTOR [Concomitant]
  8. MIRALAX [Concomitant]
  9. MULTI-VITAMINS [Concomitant]
  10. CALCIUM (CALCIUM) [Concomitant]
  11. TYLENOL PM (DIPHENHYDRAMINE, PARACETAMOL) [Concomitant]
  12. CORTISONE ACETATE [Concomitant]

REACTIONS (7)
  - BALANCE DISORDER [None]
  - DIZZINESS [None]
  - DRUG INEFFECTIVE [None]
  - DRUG TOLERANCE [None]
  - PAIN [None]
  - SWELLING FACE [None]
  - VISION BLURRED [None]
